FAERS Safety Report 7081472-3 (Version None)
Quarter: 2010Q4

REPORT INFORMATION
  Report Type: 
  Country: None (occurrence: None)
  Receive Date: 20101103
  Receipt Date: 20101026
  Transmission Date: 20110411
  Serious: Yes (Death)
  Sender: FDA-Public Use
  Company Number: GXKR2010BE12068

PATIENT
  Age: 68 Year
  Sex: Male

DRUGS (4)
  1. METHYLPREDNISOLONE 4MG TAB [Suspect]
     Indication: PNEUMOCYSTIS JIROVECI PNEUMONIA
     Dosage: 4 MG/DAY
     Route: 065
  2. CORTICOSTEROID NOS [Suspect]
     Indication: PNEUMOCYSTIS JIROVECI PNEUMONIA
     Dosage: HIGH DOSE
     Route: 065
  3. SULFAMETHOXAZOLE AND TRIMETHOPRIM [Concomitant]
     Indication: PNEUMOCYSTIS JIROVECI PNEUMONIA
     Route: 048
  4. SULFAMETHOXAZOLE AND TRIMETHOPRIM [Concomitant]
     Route: 042

REACTIONS (4)
  - COUGH [None]
  - DYSPNOEA [None]
  - ORGANISING PNEUMONIA [None]
  - PYREXIA [None]
